FAERS Safety Report 10729672 (Version 1)
Quarter: 2015Q1

REPORT INFORMATION
  Report Type: Spontaneous
  Country: US (occurrence: None)
  Receive Date: 20150121
  Receipt Date: 20150121
  Transmission Date: 20150721
  Serious: Yes (Hospitalization)
  Sender: FDA-Public Use
  Company Number: None

PATIENT
  Age: 50 Year
  Sex: Male
  Weight: 68.04 kg

DRUGS (17)
  1. LACUTLOSE [Concomitant]
  2. OMEPRAZOLE. [Concomitant]
     Active Substance: OMEPRAZOLE
  3. VITAMIN D [Concomitant]
     Active Substance: CHOLECALCIFEROL
  4. NITROFURANTOIN (MACROCRYSTALS) [Concomitant]
     Active Substance: NITROFURANTOIN
  5. SPIRONOLACTONE. [Concomitant]
     Active Substance: SPIRONOLACTONE
  6. RIBAVIRIN 200 GILEAD SCIENCES, INC. [Suspect]
     Active Substance: RIBAVIRIN
     Indication: HEPATITIS C
     Dosage: 1000 1X DAILY ORAL
     Route: 048
     Dates: start: 20140115, end: 20140702
  7. RALTEGRAVIR POTASSIUM [Concomitant]
     Active Substance: RALTEGRAVIR POTASSIUM
  8. TRAMADOL [Concomitant]
     Active Substance: TRAMADOL
  9. SOVALDI [Suspect]
     Active Substance: SOFOSBUVIR
     Indication: HEPATITIS C
     Dosage: 400 1X DAILY ORAL
     Route: 048
     Dates: start: 20140115, end: 20140702
  10. BUMETANIDE. [Concomitant]
     Active Substance: BUMETANIDE
  11. FUROSEMIDE. [Concomitant]
     Active Substance: FUROSEMIDE
  12. MULTIVITAMIN-MINERAL [Concomitant]
  13. RIFAXIMIN [Concomitant]
     Active Substance: RIFAXIMIN
  14. ZINC SULFATE [Concomitant]
     Active Substance: ZINC SULFATE\ZINC SULFATE ANHYDROUS
  15. ALLOPURINOL. [Concomitant]
     Active Substance: ALLOPURINOL
  16. ANTIHEMOPHILIC FACTOR [Concomitant]
     Active Substance: ANTIHEMOPHILIC FACTOR, HUMAN RECOMBINANT
  17. EMTRICITABINE-TENOFOVIR [Concomitant]

REACTIONS (2)
  - Hepatic encephalopathy [None]
  - Hyperbilirubinaemia [None]

NARRATIVE: CASE EVENT DATE: 20140314
